FAERS Safety Report 4452594-8 (Version None)
Quarter: 2004Q3

REPORT INFORMATION
  Report Type: 
  Country: None (occurrence: None)
  Receive Date: 20040916
  Receipt Date: 20040907
  Transmission Date: 20050211
  Serious: Yes (Other)
  Sender: FDA-Public Use
  Company Number: 2004-09-0226

PATIENT
  Sex: Male
  Weight: 90 kg

DRUGS (1)
  1. BETAMETHASONE SODIUM PHOSPHATE [Suspect]
     Indication: ANAPHYLACTIC REACTION
     Dosage: 8 MG/DAY; INTRAMUSCULAR
     Route: 030
     Dates: start: 20040815, end: 20040815

REACTIONS (4)
  - HYPERHIDROSIS [None]
  - NAUSEA [None]
  - PALLOR [None]
  - SYNCOPE [None]
